FAERS Safety Report 7445842-3 (Version None)
Quarter: 2011Q2

REPORT INFORMATION
  Report Type: 
  Country: None (occurrence: None)
  Receive Date: 20110429
  Receipt Date: 20110427
  Transmission Date: 20111010
  Serious: No
  Sender: FDA-Public Use
  Company Number: US-PFIZER INC-2011091597

PATIENT
  Sex: Female

DRUGS (2)
  1. CHANTIX [Suspect]
     Dosage: 1 MG, UNK
  2. CHANTIX [Suspect]
     Dosage: .5 MG, UNK

REACTIONS (2)
  - DECREASED APPETITE [None]
  - NAUSEA [None]
